FAERS Safety Report 25970297 (Version 2)
Quarter: 2025Q4

REPORT INFORMATION
  Report Type: Spontaneous
  Country: US (occurrence: US)
  Receive Date: 20251028
  Receipt Date: 20251230
  Transmission Date: 20260118
  Serious: Yes (Other)
  Sender: BAYER HEALTHCARE PHARMACEUTICALS INC.
  Company Number: US-BAYER-2025A141811

PATIENT
  Sex: Male

DRUGS (5)
  1. KOVALTRY [Suspect]
     Active Substance: ANTIHEMOPHILIC FACTOR, HUMAN RECOMBINANT
     Dosage: KOVALTRY 750/3164 IU: INFUSE~4000 UNITS
     Route: 042
  2. KOVALTRY [Suspect]
     Active Substance: ANTIHEMOPHILIC FACTOR, HUMAN RECOMBINANT
     Dosage: 2 DF,
     Route: 042
     Dates: start: 202510, end: 202510
  3. KOVALTRY [Suspect]
     Active Substance: ANTIHEMOPHILIC FACTOR, HUMAN RECOMBINANT
     Dosage: TREATED ONCE PRIOR TO THE SURGERY WITH DOUBLE DOSE
     Route: 042
     Dates: start: 202512, end: 202512
  4. KOVALTRY [Suspect]
     Active Substance: ANTIHEMOPHILIC FACTOR, HUMAN RECOMBINANT
     Dosage: EVERY 12 HOURS FOR 5 DAYS POST SURGERY
     Route: 042
     Dates: start: 202512, end: 202512
  5. KOVALTRY [Suspect]
     Active Substance: ANTIHEMOPHILIC FACTOR, HUMAN RECOMBINANT
     Dosage: DAILY FOR 5 DAYS
     Route: 042
     Dates: start: 202512, end: 202512

REACTIONS (1)
  - Arthropathy [Not Recovered/Not Resolved]
